FAERS Safety Report 4864159-4 (Version None)
Quarter: 2005Q4

REPORT INFORMATION
  Report Type: 
  Country: None (occurrence: None)
  Receive Date: 20051222
  Receipt Date: 20051220
  Transmission Date: 20060501
  Serious: Yes (Hospitalization)
  Sender: FDA-Public Use
  Company Number: FR-GLAXOSMITHKLINE-B0404490A

PATIENT
  Age: 98 Year
  Sex: Male

DRUGS (2)
  1. AUGMENTIN '125' [Suspect]
     Indication: HYPERTHERMIA
     Dosage: 1G THREE TIMES PER DAY
     Route: 042
     Dates: start: 20050827, end: 20050829
  2. CLAMOXYL [Suspect]
     Indication: BRONCHITIS
     Dosage: 1G THREE TIMES PER DAY
     Route: 050
     Dates: start: 20050809

REACTIONS (2)
  - CLOSTRIDIUM COLITIS [None]
  - DEHYDRATION [None]
